FAERS Safety Report 23512052 (Version 2)
Quarter: 2024Q1

REPORT INFORMATION
  Report Type: Spontaneous
  Country: DE (occurrence: DE)
  Receive Date: 20240212
  Receipt Date: 20240301
  Transmission Date: 20240410
  Serious: Yes (Hospitalization, Other)
  Sender: FDA-Public Use
  Company Number: None

PATIENT
  Age: 80 Year
  Sex: Male

DRUGS (9)
  1. AMINO ACIDS\DEXTROSE\ELECTROLYTES NOS\SOYBEAN OIL [Suspect]
     Active Substance: AMINO ACIDS\DEXTROSE\ELECTROLYTES NOS\SOYBEAN OIL
     Indication: Hypophagia
     Dosage: (ADDITIONAL INFORMATION ON DRUG: PZN 15308985) AT AN UNSPECIFIED DOSE AND FREQUENCY
     Route: 042
     Dates: start: 202211
  2. VITAMIN D3 [Concomitant]
     Active Substance: CHOLECALCIFEROL
     Indication: Vitamin supplementation
     Dosage: (VITAMIN D3 TAB 1000 IE), 2 (DF) (DOSAGE FORM) EVERY 7 DAYS, (DOSAGE TEXT - 2-0-0 EVERY 7 DAYS)
     Route: 048
  3. HYGROTON [Concomitant]
     Active Substance: CHLORTHALIDONE
     Indication: Hypertension
     Dosage: 25 MG (MILLIGRAMS) ONCE A DAY, (DOSAGE TEXT - 1-0-0)
     Route: 065
  4. CANDESARTAN [Concomitant]
     Active Substance: CANDESARTAN
     Indication: Hypertension
     Dosage: 16 MG (MILLIGRAMS) 0.5 DAY, (DOSAGE TEXT - 1-0-1)
     Route: 065
     Dates: start: 2014
  5. METOPROLOL SUCCINATE [Concomitant]
     Active Substance: METOPROLOL SUCCINATE
     Indication: Hypertension
     Dosage: (METOPROLOL SUCCINATE EXTENDED RELEASE TAB 95 MG) 95 MG (MILLIGRAMS) ONCE A DAY (DOSAGE TEXT - 1-0-0
     Route: 048
  6. PANTOPRAZOLE SODIUM [Concomitant]
     Active Substance: PANTOPRAZOLE SODIUM
     Indication: Oesophageal carcinoma
     Dosage: 40 MG (MILLIGRAMS) ONCE A DAY, (DOSAGE TEXT - 1-0-0)
     Route: 048
  7. AMLODIPINE BESYLATE [Concomitant]
     Active Substance: AMLODIPINE BESYLATE
     Indication: Hypertension
     Dosage: 5 MG (MILLIGRAMS) ONCE A DAY, (DOSAGE TEXT - 1-0-0)
     Route: 048
     Dates: start: 2022
  8. APIXABAN [Concomitant]
     Active Substance: APIXABAN
     Indication: Shunt thrombosis
     Dosage: (APIXABAN TAB 2.5 MG) 2.5 MG (MILLIGRAMS) 0.5 H (HOURS), (DOSAGE TEXT - 1-0-1)
     Route: 048
     Dates: start: 2020
  9. APIXABAN [Concomitant]
     Active Substance: APIXABAN
     Indication: Thrombosis prophylaxis

REACTIONS (4)
  - Atrial fibrillation [Recovered/Resolved]
  - Atrial flutter [Recovered/Resolved]
  - Haemoptysis [Recovered/Resolved]
  - Pneumonia [Recovered/Resolved]

NARRATIVE: CASE EVENT DATE: 20240116
